FAERS Safety Report 4614814-6 (Version None)
Quarter: 2005Q1

REPORT INFORMATION
  Report Type: 
  Country: None (occurrence: None)
  Receive Date: 20050322
  Receipt Date: 20050314
  Transmission Date: 20050727
  Serious: Yes (Other)
  Sender: FDA-Public Use
  Company Number: US-AMGEN-US121585

PATIENT

DRUGS (1)
  1. PROCRIT [Suspect]
     Indication: ANAEMIA

REACTIONS (1)
  - MYOCARDIAL INFARCTION [None]
